FAERS Safety Report 5980396-X (Version None)
Quarter: 2008Q4

REPORT INFORMATION
  Report Type: 
  Country: None (occurrence: None)
  Receive Date: 20081205
  Receipt Date: 20071113
  Transmission Date: 20090506
  Serious: No
  Sender: FDA-Public Use
  Company Number: A0694185A

PATIENT
  Age: 47 Year
  Sex: Female

DRUGS (1)
  1. COMMIT [Suspect]
     Dates: start: 20071106, end: 20071106

REACTIONS (4)
  - ANXIETY [None]
  - CHEST PAIN [None]
  - HEADACHE [None]
  - HYPOAESTHESIA [None]
